FAERS Safety Report 4897554-8 (Version None)
Quarter: 2006Q1

REPORT INFORMATION
  Report Type: 
  Country: None (occurrence: None)
  Receive Date: 20060130
  Receipt Date: 20060130
  Transmission Date: 20060701
  Serious: No
  Sender: FDA-Public Use
  Company Number: None

PATIENT
  Age: 64 Year
  Sex: Male
  Weight: 81 kg

DRUGS (2)
  1. CIPRO [Suspect]
     Indication: CELLULITIS
     Dosage: 500 MG PO Q 12 H
     Route: 048
     Dates: start: 20051019, end: 20051020
  2. VANCOMYCIN [Suspect]
     Dosage: 1000 MG IV Q 12 H
     Route: 042
     Dates: start: 20050721, end: 20051020

REACTIONS (4)
  - DRUG ERUPTION [None]
  - RASH ERYTHEMATOUS [None]
  - RASH PRURITIC [None]
  - SKIN EXFOLIATION [None]
